FAERS Safety Report 9133069 (Version 1)
Quarter: 2013Q1

REPORT INFORMATION
  Report Type: Report from Study
  Country: US (occurrence: US)
  Receive Date: 20130301
  Receipt Date: 20130301
  Transmission Date: 20140127
  Serious: Yes (Death, Hospitalization)
  Sender: FDA-Public Use
  Company Number: US-009507513-1302USA011634

PATIENT
  Age: 45 Year
  Sex: Male
  Weight: 103.18 kg

DRUGS (8)
  1. DEXAMETHASONE [Suspect]
     Dosage: 4 MG, QD
     Route: 048
  2. AVASTIN (BEVACIZUMAB) [Suspect]
     Dosage: 10 MG/KG,  Q14D
     Route: 048
  3. LEVEMIR [Concomitant]
     Dosage: 0.5 ML, BID
  4. METFORMIN HYDROCHLORIDE [Concomitant]
     Dosage: 500 MG, BID
  5. WARFARIN [Concomitant]
     Dosage: 7.5 MG M/W/F, 5 MG T/TH/SAT/SUN
  6. NOVOLOG [Concomitant]
     Dosage: SLIDE SCALE
  7. FLAXSEED [Concomitant]
     Dosage: UNK, QD
  8. CYANOCOBALAMIN [Concomitant]
     Dosage: 500 MICROGRAM, QD

REACTIONS (3)
  - Grand mal convulsion [Unknown]
  - Death [Fatal]
  - Disease progression [Fatal]
